FAERS Safety Report 19751462 (Version 3)
Quarter: 2021Q3

REPORT INFORMATION
  Report Type: Report from Study
  Country: None (occurrence: TR)
  Receive Date: 20210827
  Receipt Date: 20210927
  Transmission Date: 20211014
  Serious: Yes (Hospitalization, Other)
  Sender: FDA-Public Use
  Company Number: TR-ABBVIE-21K-161-4054752-00

PATIENT
  Sex: Female

DRUGS (5)
  1. DUODOPA [Suspect]
     Active Substance: CARBIDOPA\LEVODOPA
     Dosage: MORNING DOSE(ML): 5.00 CONTINUES DOSE(ML):1.70 EXTRA DOSE(ML):0.50
     Route: 050
     Dates: start: 20210824, end: 20210824
  2. DUODOPA [Suspect]
     Active Substance: CARBIDOPA\LEVODOPA
     Dosage: MORNING DOSE(ML): 5.00 CONTINUES DOSE(ML):2.20 EXTRA?DOSE(ML):0.50
     Route: 050
     Dates: start: 20210827
  3. DUODOPA [Suspect]
     Active Substance: CARBIDOPA\LEVODOPA
     Indication: PARKINSON^S DISEASE
     Dosage: MORNING DOSE(ML): 5.00 CONTINUES DOSE(ML):1.70 EXTRA DOSE(ML):0.50
     Route: 050
     Dates: start: 20210712, end: 20210712
  4. DUODOPA [Suspect]
     Active Substance: CARBIDOPA\LEVODOPA
     Dosage: MORNING DOSE(ML): 5.00 CONTINUES DOSE(ML):2.00 EXTRA DOSE(ML):0.50
     Route: 050
     Dates: start: 20210825, end: 20210827
  5. LEVODOPA [Concomitant]
     Active Substance: LEVODOPA
     Indication: PRODUCT USED FOR UNKNOWN INDICATION

REACTIONS (8)
  - Anaphylactic reaction [Recovered/Resolved]
  - Odynophagia [Recovered/Resolved]
  - Oesophageal ulcer [Not Recovered/Not Resolved]
  - Gastritis [Not Recovered/Not Resolved]
  - Pulmonary embolism [Not Recovered/Not Resolved]
  - Abdominal pain [Recovered/Resolved]
  - Enlarged uvula [Recovered/Resolved]
  - Hypophagia [Recovered/Resolved]

NARRATIVE: CASE EVENT DATE: 20210824
